FAERS Safety Report 24581394 (Version 3)
Quarter: 2024Q4

REPORT INFORMATION
  Report Type: Spontaneous
  Country: CN (occurrence: CN)
  Receive Date: 20241105
  Receipt Date: 20241210
  Transmission Date: 20250114
  Serious: Yes (Other)
  Sender: NOVARTIS
  Company Number: CN-002147023-NVSC2024CN212324

PATIENT
  Age: 31 Year
  Sex: Female

DRUGS (14)
  1. CYCLOSPORINE [Suspect]
     Active Substance: CYCLOSPORINE
     Indication: Prophylaxis
     Dosage: 25 MG
     Route: 048
  2. CYCLOSPORINE [Suspect]
     Active Substance: CYCLOSPORINE
     Indication: High risk pregnancy
  3. PROGESTERONE [Suspect]
     Active Substance: PROGESTERONE
     Indication: Prophylaxis
     Dosage: QD
     Route: 067
  4. PROGESTERONE [Suspect]
     Active Substance: PROGESTERONE
     Indication: High risk pregnancy
  5. PHLOROGLUCINOL [Suspect]
     Active Substance: PHLOROGLUCINOL
     Indication: Prophylaxis
     Dosage: 40 MG
     Route: 030
  6. PHLOROGLUCINOL [Suspect]
     Active Substance: PHLOROGLUCINOL
     Indication: High risk pregnancy
  7. PREDNISONE [Suspect]
     Active Substance: PREDNISONE
     Indication: Prophylaxis
     Dosage: 5 MG
     Route: 048
  8. PREDNISONE [Suspect]
     Active Substance: PREDNISONE
     Indication: High risk pregnancy
  9. ASPIRIN [Suspect]
     Active Substance: ASPIRIN
     Indication: Prophylaxis
     Dosage: 100 MG, BID
     Route: 048
  10. ASPIRIN [Suspect]
     Active Substance: ASPIRIN
     Indication: High risk pregnancy
  11. HEPARIN [Suspect]
     Active Substance: HEPARIN SODIUM
     Indication: Prophylaxis
     Dosage: 1500 IU
     Route: 058
  12. HEPARIN [Suspect]
     Active Substance: HEPARIN SODIUM
     Indication: High risk pregnancy
  13. DYDROGESTERONE [Suspect]
     Active Substance: DYDROGESTERONE
     Indication: Prophylaxis
     Route: 048
  14. DYDROGESTERONE [Suspect]
     Active Substance: DYDROGESTERONE
     Indication: High risk pregnancy

REACTIONS (3)
  - Abortion [Unknown]
  - Maternal exposure during pregnancy [Unknown]
  - Product use in unapproved indication [Unknown]
